FAERS Safety Report 4354996-7 (Version None)
Quarter: 2004Q2

REPORT INFORMATION
  Report Type: 
  Country: None (occurrence: None)
  Receive Date: 20040504
  Receipt Date: 20031225
  Transmission Date: 20050107
  Serious: Yes (Hospitalization)
  Sender: FDA-Public Use
  Company Number: 805#1#2003-00049

PATIENT
  Age: 80 Year
  Sex: Female

DRUGS (7)
  1. ALPROSTADIL [Suspect]
     Indication: ARTERIAL OCCLUSIVE DISEASE
     Dosage: SEE IMAGE
     Route: 041
     Dates: start: 20031119, end: 20031129
  2. ALPROSTADIL [Suspect]
     Indication: ARTERIAL OCCLUSIVE DISEASE
     Dosage: SEE IMAGE
     Route: 041
     Dates: start: 20031210, end: 20031210
  3. ALPROSTADIL [Concomitant]
  4. HEPARIN-SODIUM (HEPARIN) [Concomitant]
  5. NICORANDIL (NICORANDIL) [Concomitant]
  6. FUROSEMIDE [Concomitant]
  7. NATELGLINIDE (NATEGLINIDE) [Concomitant]

REACTIONS (17)
  - ASCITES [None]
  - BLOOD POTASSIUM INCREASED [None]
  - BLOOD SODIUM DECREASED [None]
  - DEPRESSED LEVEL OF CONSCIOUSNESS [None]
  - DISSEMINATED INTRAVASCULAR COAGULATION [None]
  - DYSURIA [None]
  - HAEMATOCRIT DECREASED [None]
  - HAEMODIALYSIS [None]
  - HAEMOGLOBIN DECREASED [None]
  - HYPOGLYCAEMIA [None]
  - NEPHRITIS INTERSTITIAL [None]
  - PLEURAL EFFUSION [None]
  - PYREXIA [None]
  - RED BLOOD CELL COUNT DECREASED [None]
  - RENAL ATROPHY [None]
  - RENAL IMPAIRMENT [None]
  - URINE ABNORMALITY [None]
